FAERS Safety Report 5930373-X (Version None)
Quarter: 2008Q4

REPORT INFORMATION
  Report Type: 
  Country: None (occurrence: None)
  Receive Date: 20081023
  Receipt Date: 20060427
  Transmission Date: 20090506
  Serious: Yes (Hospitalization, Other)
  Sender: FDA-Public Use
  Company Number: 2006AL001991

PATIENT
  Age: 91 Year
  Sex: Male

DRUGS (11)
  1. DIGOXIN [Suspect]
     Indication: ATRIAL FIBRILLATION
     Dosage: 125 UG; QD; PO
     Route: 048
     Dates: start: 20051201, end: 20060405
  2. FUROSEMIDE [Concomitant]
  3. SPIRONOLACTONE [Concomitant]
  4. AMIODARONE HCL [Concomitant]
  5. ETORICOXIB [Concomitant]
  6. COVERSYL [Concomitant]
  7. CEPHALEXIN [Concomitant]
  8. BISOPROLOL FUMARATE [Concomitant]
  9. SALBUTAMOL [Concomitant]
  10. IPRATROPIUM BROMIDE [Concomitant]
  11. FLUTICASONE PROPIONATE [Concomitant]

REACTIONS (2)
  - CARDIOACTIVE DRUG LEVEL INCREASED [None]
  - RENAL FAILURE ACUTE [None]
